FAERS Safety Report 23616668 (Version 5)
Quarter: 2024Q2

REPORT INFORMATION
  Report Type: Other
  Country: US (occurrence: None)
  Receive Date: 20240311
  Receipt Date: 20240403
  Transmission Date: 20240716
  Serious: Yes (Death, Other)
  Sender: FDA-Public Use
  Company Number: US-ROCHE-3523727

PATIENT
  Age: 72 Year
  Sex: Male
  Weight: 104.87 kg

DRUGS (8)
  1. ALECENSA [Suspect]
     Active Substance: ALECTINIB HYDROCHLORIDE
     Indication: Lung neoplasm malignant
     Dosage: TAKE 4 CAPSULE(S) BY MOUTH (600 MG) TWICE A DAY WITH A MEAL/FOOD
     Route: 048
     Dates: start: 201906, end: 202401
  2. APIXABAN [Concomitant]
     Active Substance: APIXABAN
  3. CHLORPHENIRAMINE [Concomitant]
     Active Substance: CHLORPHENIRAMINE
  4. FLECAINIDE [Concomitant]
     Active Substance: FLECAINIDE
  5. LUTEIN [Concomitant]
     Active Substance: LUTEIN
  6. ROSUVASTATIN [Concomitant]
     Active Substance: ROSUVASTATIN
  7. ZINC [Concomitant]
     Active Substance: PYRITHIONE ZINC\ZINC\ZINC CHLORIDE
  8. DEXAMETHASONE [Concomitant]
     Active Substance: DEXAMETHASONE

REACTIONS (3)
  - Metastases to lung [Fatal]
  - Metastases to central nervous system [Fatal]
  - Metastases to meninges [Unknown]
